FAERS Safety Report 9547411 (Version 1)
Quarter: 2013Q3

REPORT INFORMATION
  Report Type: Spontaneous
  Country: US (occurrence: None)
  Receive Date: 20130919
  Receipt Date: 20130919
  Transmission Date: 20140515
  Serious: Yes (Hospitalization)
  Sender: FDA-Public Use
  Company Number: SYM-2013-10676

PATIENT
  Age: 57 Year
  Sex: Male
  Weight: 70.31 kg

DRUGS (1)
  1. PYRIDOSTIGMINE BROMIDE [Suspect]
     Indication: MYASTHENIA GRAVIS
     Route: 048
     Dates: start: 2013

REACTIONS (8)
  - Aphagia [None]
  - Mastication disorder [None]
  - Dysphagia [None]
  - Choking [None]
  - Muscle spasms [None]
  - Asthenia [None]
  - Diarrhoea [None]
  - Weight decreased [None]
